FAERS Safety Report 16238186 (Version 8)
Quarter: 2020Q3

REPORT INFORMATION
  Report Type: Spontaneous
  Country: US (occurrence: US)
  Receive Date: 20190425
  Receipt Date: 20200721
  Transmission Date: 20201102
  Serious: Yes (Other)
  Sender: FDA-Public Use
  Company Number: US-PFIZER INC-2019095146

PATIENT
  Age: 66 Year
  Sex: Female
  Weight: 58 kg

DRUGS (15)
  1. XELJANZ XR [Suspect]
     Active Substance: TOFACITINIB CITRATE
     Dosage: 11 MG, AS NEEDED (11 MG T (TABLET) PO (ORALLY) DAILY) (NOTE?TAKING/PRN (AS NEEDED)
     Route: 048
     Dates: start: 20180131
  2. OMEPRAZOLE. [Concomitant]
     Active Substance: OMEPRAZOLE
     Dosage: 40 MG, DAILY (DELAYED RELEASE/CAPSULE ORALLY ONCE A DAY)
     Route: 048
  3. ORENITRAM [Concomitant]
     Active Substance: TREPROSTINIL
     Dosage: 0.125 MG, UNK
  4. PROLIA [Concomitant]
     Active Substance: DENOSUMAB
     Dosage: 60 MG/ML (60 MG/ML SOLUTION SUBCUTANEOUS EVERY 6 MONTHS)
     Route: 058
  5. RASUVO [Concomitant]
     Active Substance: METHOTREXATE SODIUM
     Dosage: 10 MG, UNK (10MG/0.2ML AUTO INJCT)
  6. CALTRATE WITH VITAMIN D [Concomitant]
     Active Substance: CALCIUM CARBONATE\CHOLECALCIFEROL
     Dosage: 2X/DAY(1 TABLET BID (TWICE A DAY)
  7. TYLENOL WITH CODEINE [Concomitant]
     Active Substance: ACETAMINOPHEN\CODEINE PHOSPHATE
     Dosage: AS NEEDED (300?30 TABLET TAKE ONE TABLET BY MOUTH EVERY 6 HOURS AS NEEDED^ FOR PAIN ORALLY)
     Route: 048
  8. MELOXICAM. [Concomitant]
     Active Substance: MELOXICAM
     Dosage: 15 MG, DAILY (TAKE ONE TABLET BY MOUTH DAILY)
     Route: 048
  9. LETAIRIS [Concomitant]
     Active Substance: AMBRISENTAN
     Dosage: 10 MG, 1X/DAY (1 TABLET ORALLY ONCE A DAY)
     Route: 048
  10. XELJANZ XR [Suspect]
     Active Substance: TOFACITINIB CITRATE
     Indication: RHEUMATOID ARTHRITIS
     Dosage: 11 MG, 1X/DAY
     Route: 048
     Dates: start: 20180301, end: 2018
  11. ADCIRCA [Concomitant]
     Active Substance: TADALAFIL
     Dosage: 20 MG, UNK
  12. PREDNISONE. [Concomitant]
     Active Substance: PREDNISONE
     Dosage: 10 MG, UNK
  13. TADALAFIL. [Concomitant]
     Active Substance: TADALAFIL
     Dosage: 20 MG, 2X/DAY
     Route: 048
  14. ORENITRAM [Concomitant]
     Active Substance: TREPROSTINIL
     Dosage: 5 MG, 3X/DAY (4.75MG ORALLY THREE TIMES DAILY, NOTES: PER (NAME WITHHELD) INCREASE BY 0.125 MG PER M
     Route: 048
  15. XELJANZ XR [Suspect]
     Active Substance: TOFACITINIB CITRATE
     Dosage: 11 MG, DAILY
     Route: 048
     Dates: start: 2018

REACTIONS (2)
  - Pulmonary arterial hypertension [Recovered/Resolved]
  - Diarrhoea [Recovered/Resolved]
